FAERS Safety Report 9869946 (Version 1)
Quarter: 2014Q1

REPORT INFORMATION
  Report Type: Spontaneous
  Country: US (occurrence: None)
  Receive Date: 20140203
  Receipt Date: 20140203
  Transmission Date: 20141002
  Serious: No
  Sender: FDA-Public Use
  Company Number: None

PATIENT
  Sex: 0

DRUGS (2)
  1. ROTAGLIDE [Suspect]
  2. DIPRIVAN [Suspect]
     Route: 042

REACTIONS (2)
  - Medication error [None]
  - Product label confusion [None]
